FAERS Safety Report 5919592-6 (Version None)
Quarter: 2008Q4

REPORT INFORMATION
  Report Type: 
  Country: None (occurrence: None)
  Receive Date: 20081015
  Receipt Date: 20080418
  Transmission Date: 20090506
  Serious: No
  Sender: FDA-Public Use
  Company Number: US-BRISTOL-MYERS SQUIBB COMPANY-14157333

PATIENT
  Age: 43 Year
  Sex: Female

DRUGS (4)
  1. KENALOG-40 [Suspect]
     Indication: BACK PAIN
     Route: 030
     Dates: start: 20070807
  2. SYNTHROID [Concomitant]
  3. CALCIUM + VITAMIN D [Concomitant]
  4. FOSAMAX [Concomitant]

REACTIONS (1)
  - INJECTION SITE ATROPHY [None]
